FAERS Safety Report 16660350 (Version 1)
Quarter: 2019Q3

REPORT INFORMATION
  Report Type: Spontaneous
  Country: TR (occurrence: TR)
  Receive Date: 20190802
  Receipt Date: 20190802
  Transmission Date: 20191004
  Serious: Yes (Other)
  Sender: FDA-Public Use
  Company Number: PHHY2019TR178277

PATIENT
  Age: 46 Year
  Sex: Female

DRUGS (1)
  1. ETANERCEPT [Suspect]
     Active Substance: ETANERCEPT
     Indication: ANKYLOSING SPONDYLITIS
     Dosage: 50 MG, QW
     Route: 065

REACTIONS (4)
  - Ileal ulcer [Unknown]
  - Aphthous ulcer [Unknown]
  - Crohn^s disease [Unknown]
  - Diarrhoea [Unknown]
